FAERS Safety Report 9418707 (Version 1)
Quarter: 2013Q3

REPORT INFORMATION
  Report Type: Spontaneous
  Country: CO (occurrence: CO)
  Receive Date: 20130725
  Receipt Date: 20130725
  Transmission Date: 20140515
  Serious: Yes (Other)
  Sender: FDA-Public Use
  Company Number: CO-AMGEN-COLSP2013050950

PATIENT
  Age: 56 Year
  Sex: Female

DRUGS (4)
  1. ENBREL [Suspect]
     Indication: RHEUMATOID ARTHRITIS
     Dosage: 50 MG, WEEKLY
     Route: 058
     Dates: start: 20120212, end: 201212
  2. PREDNISOLONE [Concomitant]
     Indication: PAIN
     Dosage: 5 MG, QD
     Dates: start: 1975
  3. ALENDRONATE SODIUM [Concomitant]
     Indication: OSTEOPOROSIS
     Dosage: UNK UNK, QWK
     Route: 048
     Dates: start: 2003
  4. ACETAMINOPHEN [Concomitant]
     Indication: PAIN
     Dosage: 500 MG, AS NECESSARY
     Route: 048
     Dates: start: 201202

REACTIONS (6)
  - Local swelling [Not Recovered/Not Resolved]
  - Conjunctivitis [Unknown]
  - Urticaria [Unknown]
  - Pruritus [Unknown]
  - Onychomadesis [Unknown]
  - Blood cholesterol increased [Unknown]
